FAERS Safety Report 5108536-5 (Version None)
Quarter: 2006Q3

REPORT INFORMATION
  Report Type: 
  Country: None (occurrence: None)
  Receive Date: 20060731
  Receipt Date: 20060508
  Transmission Date: 20061208
  Serious: No
  Sender: FDA-Public Use
  Company Number: 2006PV013534

PATIENT
  Age: 64 Year
  Sex: Female
  Weight: 90.7194 kg

DRUGS (6)
  1. BYETTA [Suspect]
     Indication: DIABETES MELLITUS NON-INSULIN-DEPENDENT
     Dosage: 5 MCG;BID;SC
     Route: 058
     Dates: start: 20060325
  2. MACROBID [Suspect]
     Indication: URINARY TRACT INFECTION
     Dosage: 100 MG; BID;
     Dates: start: 20060505, end: 20060507
  3. GLUCOPHAGE [Concomitant]
  4. ACTONEL [Concomitant]
  5. PAMINE [Concomitant]
  6. NEXIUM [Concomitant]

REACTIONS (11)
  - ABDOMINAL DISTENSION [None]
  - ALOPECIA [None]
  - CHILLS [None]
  - DECREASED APPETITE [None]
  - DIARRHOEA [None]
  - FEELING ABNORMAL [None]
  - FUNGAL INFECTION [None]
  - NAUSEA [None]
  - PYREXIA [None]
  - URINARY TRACT INFECTION [None]
  - VOMITING [None]
